FAERS Safety Report 6161814-3 (Version None)
Quarter: 2009Q2

REPORT INFORMATION
  Report Type: 
  Country: None (occurrence: None)
  Receive Date: 20090421
  Receipt Date: 20090414
  Transmission Date: 20091009
  Serious: Yes (Other)
  Sender: FDA-Public Use
  Company Number: BR-ROCHE-627479

PATIENT
  Sex: Male
  Weight: 65 kg

DRUGS (2)
  1. RIVOTRIL [Suspect]
     Indication: PHOBIA
     Dosage: DOSAGE FREQUENCY: AT 4 OR 5 AM
     Route: 048
     Dates: start: 20030101
  2. ANAFRANIL [Suspect]
     Indication: DRUG USE FOR UNKNOWN INDICATION
     Route: 065

REACTIONS (4)
  - GASTRIC DISORDER [None]
  - NO THERAPEUTIC RESPONSE [None]
  - WEIGHT DECREASED [None]
  - WEIGHT INCREASED [None]
